FAERS Safety Report 9443775 (Version 3)
Quarter: 2014Q1

REPORT INFORMATION
  Report Type: Spontaneous
  Country: US (occurrence: US)
  Receive Date: 20130803
  Receipt Date: 20140205
  Transmission Date: 20141002
  Serious: Yes (Hospitalization)
  Sender: FDA-Public Use
  Company Number: US-B.I. PHARMACEUTICALS,INC./RIDGEFIELD-2013-BI-22943BP

PATIENT
  Age: 86 Year
  Sex: Female
  Weight: 74.39 kg

DRUGS (7)
  1. PRADAXA [Suspect]
     Indication: ATRIAL FIBRILLATION
     Dosage: 300 MG
     Route: 048
     Dates: start: 20110328, end: 201204
  2. POTASSIUM [Concomitant]
     Dosage: 20 MEQ
  3. LASIX [Concomitant]
     Dosage: 80 MG
  4. ALDACTONE [Concomitant]
     Dosage: 25 MG
  5. KEFLEX [Concomitant]
  6. MICARDIS/HYDROCHLOROTHIAZIDE [Concomitant]
  7. CELEBREX [Concomitant]
     Dosage: 200 MG

REACTIONS (6)
  - Gastrointestinal haemorrhage [Unknown]
  - Haemorrhagic anaemia [Unknown]
  - Anaemia [Unknown]
  - Haemorrhagic stroke [Unknown]
  - Cerebral haemorrhage [Unknown]
  - Renal failure acute [Unknown]
